FAERS Safety Report 6021752-3 (Version None)
Quarter: 2008Q4

REPORT INFORMATION
  Report Type: 
  Country: None (occurrence: None)
  Receive Date: 20081229
  Receipt Date: 20081225
  Transmission Date: 20090506
  Serious: Yes (Death, Other)
  Sender: FDA-Public Use
  Company Number: PHHY2008JP05306

PATIENT
  Age: 77 Year
  Sex: Male

DRUGS (2)
  1. DESFERAL [Suspect]
     Indication: SERUM FERRITIN
     Dosage: 1000 MG, UNK
     Route: 042
     Dates: start: 20080325, end: 20080328
  2. NEORAL [Concomitant]
     Route: 048

REACTIONS (5)
  - BLOOD CREATININE INCREASED [None]
  - DEAFNESS [None]
  - PROGRESSIVE MULTIFOCAL LEUKOENCEPHALOPATHY [None]
  - PYREXIA [None]
  - VIRAL INFECTION [None]
